FAERS Safety Report 10333357 (Version 1)
Quarter: 2014Q3

REPORT INFORMATION
  Report Type: Spontaneous
  Country: US (occurrence: US)
  Receive Date: 20140722
  Receipt Date: 20140722
  Transmission Date: 20150326
  Serious: No
  Sender: FDA-Public Use
  Company Number: US-SA-2014SA064429

PATIENT
  Sex: Male

DRUGS (2)
  1. AMBIEN [Suspect]
     Active Substance: ZOLPIDEM TARTRATE
     Indication: PRODUCT USED FOR UNKNOWN INDICATION
     Route: 065
  2. TALWIN [Concomitant]
     Active Substance: PENTAZOCINE LACTATE
     Dates: end: 20100330

REACTIONS (3)
  - Somnolence [Unknown]
  - Drug withdrawal syndrome [Unknown]
  - Tremor [Unknown]
